FAERS Safety Report 10070836 (Version 1)
Quarter: 2014Q2

REPORT INFORMATION
  Report Type: Report from Study
  Country: US (occurrence: US)
  Receive Date: 20140410
  Receipt Date: 20140410
  Transmission Date: 20141212
  Serious: Yes (Hospitalization)
  Sender: FDA-Public Use
  Company Number: US-BRISTOL-MYERS SQUIBB COMPANY-20581823

PATIENT
  Age: 51 Year
  Sex: Female
  Weight: 87.07 kg

DRUGS (1)
  1. ORENCIA [Suspect]
     Indication: RHEUMATOID ARTHRITIS
     Dosage: ORENCIA IV?LAST DSE OF ORENCIA SQ WAS LAST , 20MAR2014?LAST DSE OF ORENCIA IV WAS 27FEB2014.
     Route: 042

REACTIONS (5)
  - Convulsion [Unknown]
  - Nausea [Unknown]
  - Headache [Unknown]
  - Gait disturbance [Unknown]
  - Dizziness [Unknown]
